FAERS Safety Report 10082746 (Version 1)
Quarter: 2014Q2

REPORT INFORMATION
  Report Type: Spontaneous
  Country: JP (occurrence: JP)
  Receive Date: 20140416
  Receipt Date: 20140416
  Transmission Date: 20141212
  Serious: Yes (Hospitalization)
  Sender: FDA-Public Use
  Company Number: PHHY2014JP044330

PATIENT
  Age: 45 Year
  Sex: Female

DRUGS (3)
  1. CLARITHROMYCIN SANDOZ [Suspect]
     Indication: HELICOBACTER INFECTION
     Dosage: 400 MG, UNK
     Route: 048
     Dates: start: 20130827, end: 20130902
  2. AMOXICILLIN [Concomitant]
     Indication: HELICOBACTER INFECTION
     Dosage: 1500 MG, UNK
     Route: 048
     Dates: start: 20130827, end: 20130902
  3. OMEPRAZOLE [Concomitant]
     Indication: HELICOBACTER INFECTION
     Dosage: 40 MG, UNK
     Dates: start: 20130827, end: 20130902

REACTIONS (5)
  - Enterocolitis haemorrhagic [Recovering/Resolving]
  - Haematochezia [Recovering/Resolving]
  - Erythema [Recovering/Resolving]
  - Oedema [Recovering/Resolving]
  - Abdominal pain [Recovering/Resolving]
